FAERS Safety Report 15482787 (Version 1)
Quarter: 2018Q4

REPORT INFORMATION
  Report Type: Spontaneous
  Country: US (occurrence: US)
  Receive Date: 20181003
  Receipt Date: 20181003
  Transmission Date: 20190205
  Serious: Yes (Other)
  Sender: FDA-Public Use
  Company Number: None

PATIENT
  Age: 66 Year
  Weight: 104.8 kg

DRUGS (1)
  1. YESCARTA [Suspect]
     Active Substance: AXICABTAGENE CILOLEUCEL
     Indication: DIFFUSE LARGE B-CELL LYMPHOMA
     Route: 042

REACTIONS (10)
  - Thrombocytopenia [None]
  - Encephalopathy [None]
  - Neuropathy peripheral [None]
  - Pyrexia [None]
  - Hypoxia [None]
  - Disease progression [None]
  - Atrial fibrillation [None]
  - Neurotoxicity [None]
  - Aphasia [None]
  - Cytokine release syndrome [None]

NARRATIVE: CASE EVENT DATE: 20180831
